FAERS Safety Report 4503140-1 (Version None)
Quarter: 2004Q4

REPORT INFORMATION
  Report Type: 
  Country: None (occurrence: None)
  Receive Date: 20041117
  Receipt Date: 20040727
  Transmission Date: 20050328
  Serious: No
  Sender: FDA-Public Use
  Company Number: US-BRISTOL-MYERS SQUIBB COMPANY-12652442

PATIENT
  Age: 76 Year
  Sex: Male

DRUGS (2)
  1. CYTOXAN [Suspect]
     Indication: NON-HODGKIN'S LYMPHOMA
  2. VEPESID [Suspect]
     Indication: NON-HODGKIN'S LYMPHOMA

REACTIONS (1)
  - UNEVALUABLE EVENT [None]
